FAERS Safety Report 9100562 (Version 1)
Quarter: 2013Q1

REPORT INFORMATION
  Report Type: Spontaneous
  Country: US (occurrence: US)
  Receive Date: 20130214
  Receipt Date: 20130214
  Transmission Date: 20140127
  Serious: Yes (Other)
  Sender: FDA-Public Use
  Company Number: PHEH2013US003673

PATIENT
  Sex: Female
  Weight: 71.66 kg

DRUGS (4)
  1. GILENYA [Suspect]
     Dosage: 0.5 MG, DAILY
     Route: 048
     Dates: start: 20110406, end: 201209
  2. BENICAR HCT [Concomitant]
     Route: 048
  3. MESTINON [Concomitant]
     Dosage: 60 MG, UNK
     Route: 048
  4. SYNTHROID [Concomitant]
     Dosage: 0.1 UG, QD
     Route: 048

REACTIONS (1)
  - Subcutaneous abscess [Recovered/Resolved]
